FAERS Safety Report 9566740 (Version 1)
Quarter: 2013Q3

REPORT INFORMATION
  Report Type: Spontaneous
  Country: US (occurrence: US)
  Receive Date: 20130930
  Receipt Date: 20130930
  Transmission Date: 20140515
  Serious: No
  Sender: FDA-Public Use
  Company Number: US-AMGEN-USASP2012077499

PATIENT
  Age: 39 Year
  Sex: Female
  Weight: 134.24 kg

DRUGS (24)
  1. ENBREL [Suspect]
     Indication: PRODUCT USED FOR UNKNOWN INDICATION
     Dosage: 50 MG, QWK
     Route: 058
  2. AMBIEN [Concomitant]
     Dosage: 10 MG, UNK
  3. PILOCARPIN [Concomitant]
     Dosage: UNK (SOL1%OP)
     Route: 048
  4. VICODIN ES [Concomitant]
     Dosage: UNK (7.5-750)
  5. DIOVAN [Concomitant]
     Dosage: 40 MG, UNK
  6. CLONAZEPAM [Concomitant]
     Dosage: 0.5 MG, UNK
  7. GABAPENTIN [Concomitant]
     Dosage: 300 MG, UNK
  8. CYCLOBENZAPRINE [Concomitant]
     Dosage: 10 MG, UNK
  9. WELLBUTRIN [Concomitant]
     Dosage: 150 MG, UNK (150 MG SR)
  10. SEREVENT [Concomitant]
     Dosage: UNK (DIS AER 50 MCG)
  11. IMITREX                            /01044801/ [Concomitant]
     Dosage: 100 MG, UNK
  12. PHENTERMINE [Concomitant]
     Dosage: 15 MG, UNK
  13. LEXAPRO [Concomitant]
     Dosage: 20 MG, UNK
  14. TRAZODONE [Concomitant]
     Dosage: 150 MG, UNK
  15. POTASSIUM [Concomitant]
     Dosage: 75 MG, UNK
  16. NIACIN [Concomitant]
     Dosage: 500 MG  ER, UNK
  17. ASPIRIN BUFFERED [Concomitant]
     Dosage: 325 MG, UNK
  18. VITAMIN D                          /00107901/ [Concomitant]
     Dosage: 1000 UNIT, UNK
  19. PROAIR                             /00139502/ [Concomitant]
     Dosage: UNK (HFA AER)
  20. CALCIUM [Concomitant]
     Dosage: 500 UNK, UNK
  21. VITAMIN C                          /00008001/ [Concomitant]
     Dosage: 500 MG, UNK
  22. FOLIC ACID [Concomitant]
     Dosage: 20 MG, UNK
  23. FLOVENT [Concomitant]
     Dosage: UNK (AER110MCG)
  24. DICLOFENAC [Concomitant]
     Dosage: 100 MG  SR, UNK

REACTIONS (1)
  - Urinary tract infection [Unknown]
